FAERS Safety Report 19436062 (Version 1)
Quarter: 2021Q2

REPORT INFORMATION
  Report Type: Spontaneous
  Country: FR (occurrence: FR)
  Receive Date: 20210618
  Receipt Date: 20210618
  Transmission Date: 20210717
  Serious: Yes (Death, Hospitalization)
  Sender: FDA-Public Use
  Company Number: FR-ACCORD-228094

PATIENT
  Age: 82 Year
  Sex: Male
  Weight: 66 kg

DRUGS (10)
  1. AZACITIDINE. [Suspect]
     Active Substance: AZACITIDINE
     Indication: ACUTE MYELOID LEUKAEMIA
     Route: 058
     Dates: start: 20210323, end: 20210331
  2. PANTOPRAZOLE [Concomitant]
     Active Substance: PANTOPRAZOLE
  3. VENETOCLAX. [Suspect]
     Active Substance: VENETOCLAX
     Indication: ACUTE MYELOID LEUKAEMIA
     Dosage: 100 MG D1 200 MG D2 400 MG D3 TO D23
     Route: 048
     Dates: start: 20210323, end: 20210414
  4. FEBUXOSTAT. [Concomitant]
     Active Substance: FEBUXOSTAT
  5. PIPERACILLIN. [Concomitant]
     Active Substance: PIPERACILLIN SODIUM
  6. LERCANIDIPINE/LERCANIDIPINE HYDROCHLORIDE [Concomitant]
     Active Substance: LERCANIDIPINE\LERCANIDIPINE HYDROCHLORIDE
  7. TIOTROPIUM [Concomitant]
     Active Substance: TIOTROPIUM
  8. IMIPENEM [Concomitant]
     Active Substance: IMIPENEM
  9. TAZOBACTAM/TAZOBACTAM SODIUM [Concomitant]
     Active Substance: TAZOBACTAM SODIUM
  10. VALPROMIDE [Concomitant]
     Active Substance: VALPROMIDE

REACTIONS (2)
  - Aplasia [Fatal]
  - Septic shock [Fatal]

NARRATIVE: CASE EVENT DATE: 20210413
